FAERS Safety Report 9760733 (Version 6)
Quarter: 2014Q3

REPORT INFORMATION
  Report Type: Spontaneous
  Country: IT (occurrence: IT)
  Receive Date: 20131216
  Receipt Date: 20140722
  Transmission Date: 20150326
  Serious: Yes (Hospitalization, Other)
  Sender: FDA-Public Use
  Company Number: IT-BRISTOL-MYERS SQUIBB COMPANY-19891571

PATIENT
  Age: 83 Year
  Sex: Male
  Weight: 95 kg

DRUGS (9)
  1. LASIX [Concomitant]
     Active Substance: FUROSEMIDE
     Dosage: TABLET
     Route: 048
  2. OMEPRAZOLE. [Concomitant]
     Active Substance: OMEPRAZOLE
     Route: 048
  3. NITRODERM [Concomitant]
     Active Substance: NITROGLYCERIN
     Dosage: CUTANEOUS
     Route: 062
  4. COUMADIN [Suspect]
     Active Substance: WARFARIN SODIUM
     Indication: ATRIAL FIBRILLATION
     Dosage: 1 DF:1 UNIT, LAST DOSE:25-NOV-2013?25NOV13-02MAR14
     Route: 048
     Dates: start: 20100101
  5. DEXAMETHASONE. [Concomitant]
     Active Substance: DEXAMETHASONE
     Dosage: 1DF: 1MG/ML+3MG/ML?2/DROPS/CONJUNCTIVAL
     Route: 047
  6. ALLOPURINOL. [Concomitant]
     Active Substance: ALLOPURINOL
     Route: 048
  7. SPIRONOLACTONE. [Concomitant]
     Active Substance: SPIRONOLACTONE
     Route: 048
  8. DUTASTERIDE [Concomitant]
     Active Substance: DUTASTERIDE
     Dosage: 1 DF : 1 UNIT
     Route: 048
  9. CONGESCOR [Concomitant]
     Active Substance: BISOPROLOL
     Dosage: TABLET
     Route: 048

REACTIONS (5)
  - Anaemia [Recovering/Resolving]
  - Melaena [Recovering/Resolving]
  - Duodenal ulcer haemorrhage [Unknown]
  - Small intestine ulcer [Recovering/Resolving]
  - Gastritis [Recovering/Resolving]

NARRATIVE: CASE EVENT DATE: 20130527
